FAERS Safety Report 5922616-3 (Version None)
Quarter: 2008Q4

REPORT INFORMATION
  Report Type: 
  Country: None (occurrence: None)
  Receive Date: 20081017
  Receipt Date: 20081010
  Transmission Date: 20090506
  Serious: Yes (Other)
  Sender: FDA-Public Use
  Company Number: PHHY2008BR16850

PATIENT
  Sex: Female
  Weight: 60 kg

DRUGS (3)
  1. PARLODEL [Suspect]
     Dosage: 2.5 MG (2 TABLETS EVERY 12 HOURS)
     Route: 048
     Dates: start: 20080601
  2. LANTUS [Concomitant]
     Dosage: 34 IU EVERY MORNING BEFORE BREAKFAST
     Dates: start: 20071001
  3. HUMALOG [Concomitant]
     Dosage: VARIABLE DOSAGE
     Dates: start: 20071001

REACTIONS (3)
  - DRUG EXPOSURE VIA BREAST MILK [None]
  - HYPOGLYCAEMIA [None]
  - SUPPRESSED LACTATION [None]
